FAERS Safety Report 8334646-5 (Version None)
Quarter: 2012Q2

REPORT INFORMATION
  Report Type: 
  Country: None (occurrence: None)
  Receive Date: 20120503
  Receipt Date: 20120425
  Transmission Date: 20120825
  Serious: No
  Sender: FDA-Public Use
  Company Number: US-JNJFOC-20120412421

PATIENT
  Sex: Female
  Weight: 35.38 kg

DRUGS (2)
  1. FENTANYL-100 [Suspect]
     Indication: BACK PAIN
     Route: 062
     Dates: start: 20110101
  2. FENTANYL-100 [Suspect]
     Indication: NECK PAIN
     Route: 062
     Dates: start: 20110101

REACTIONS (2)
  - THERAPEUTIC RESPONSE DECREASED [None]
  - INCORRECT DRUG ADMINISTRATION DURATION [None]
